FAERS Safety Report 8256688-0 (Version None)
Quarter: 2012Q2

REPORT INFORMATION
  Report Type: 
  Country: None (occurrence: None)
  Receive Date: 20120403
  Receipt Date: 20120322
  Transmission Date: 20120825
  Serious: Yes (Other)
  Sender: FDA-Public Use
  Company Number: US-JNJFOC-20120400391

PATIENT
  Sex: Male

DRUGS (5)
  1. CYMBALTA [Suspect]
     Indication: DEPRESSION
     Route: 065
  2. WELLBUTRIN [Suspect]
     Indication: DEPRESSION
     Route: 065
  3. TRAMADOL HCL [Suspect]
     Indication: PAIN
     Route: 065
  4. LEXAPRO [Suspect]
     Indication: DEPRESSION
     Route: 065
  5. ALL OTHER THERAPEUTIC PRODUCTS [Suspect]
     Indication: DEPRESSION
     Route: 065

REACTIONS (4)
  - DRUG INEFFECTIVE [None]
  - MUSCULOSKELETAL STIFFNESS [None]
  - PAIN [None]
  - MUSCLE SPASTICITY [None]
